FAERS Safety Report 10575808 (Version 1)
Quarter: 2014Q4

REPORT INFORMATION
  Report Type: Spontaneous
  Country: AU (occurrence: AU)
  Receive Date: 20141111
  Receipt Date: 20141111
  Transmission Date: 20150529
  Serious: Yes (Other)
  Sender: FDA-Public Use
  Company Number: AU-JNJFOC-20141020897

PATIENT
  Sex: Female

DRUGS (1)
  1. DUROGESIC [Suspect]
     Active Substance: FENTANYL
     Indication: PRODUCT USED FOR UNKNOWN INDICATION
     Route: 062

REACTIONS (11)
  - Enuresis [Unknown]
  - Drug prescribing error [Unknown]
  - Breast pain [Unknown]
  - Peripheral swelling [Unknown]
  - Hyperhidrosis [Unknown]
  - Hallucinations, mixed [Unknown]
  - Chest pain [Unknown]
  - Dermatitis contact [Unknown]
  - Insomnia [Unknown]
  - Dehydration [Unknown]
  - Application site vesicles [Unknown]
